FAERS Safety Report 4514065-X (Version None)
Quarter: 2004Q4

REPORT INFORMATION
  Report Type: 
  Country: None (occurrence: None)
  Receive Date: 20041130
  Receipt Date: 20041119
  Transmission Date: 20050328
  Serious: Yes (Hospitalization)
  Sender: FDA-Public Use
  Company Number: FR-GLAXOSMITHKLINE-B0357649A

PATIENT
  Age: 79 Year
  Sex: Female

DRUGS (1)
  1. DEROXAT [Suspect]
     Indication: DYSTHYMIC DISORDER
     Dosage: 20MG PER DAY
     Route: 048

REACTIONS (3)
  - FALL [None]
  - GENERALISED OEDEMA [None]
  - HYPONATRAEMIA [None]
